FAERS Safety Report 22640559 (Version 1)
Quarter: 2023Q2

REPORT INFORMATION
  Report Type: Spontaneous
  Country: ES (occurrence: ES)
  Receive Date: 20230626
  Receipt Date: 20230626
  Transmission Date: 20230722
  Serious: Yes (Life-Threatening)
  Sender: FDA-Public Use
  Company Number: None

PATIENT
  Age: 82 Year
  Sex: Male

DRUGS (3)
  1. METFORMIN [Suspect]
     Active Substance: METFORMIN HYDROCHLORIDE
     Indication: Type 2 diabetes mellitus
     Dosage: 850 MG, Q12H (50 COMPRIMIDOS)
     Route: 048
     Dates: start: 20190601, end: 20230511
  2. JARDIANCE [Concomitant]
     Active Substance: EMPAGLIFLOZIN
     Indication: Diabetes mellitus
     Dosage: 25 MG, Q24H (COMPRIMIDOS RECUBIERTOS CON PELICULA 30 COMPRIMIDOS)
     Route: 048
     Dates: start: 20230310
  3. SYNJARDY [Concomitant]
     Active Substance: EMPAGLIFLOZIN\METFORMIN HYDROCHLORIDE
     Indication: Diabetes mellitus
     Dosage: 1 DOSAGE FORM, Q12H (5 MG/1000 MG COMPRIMIDOS RECUBIERTOS CON PELICULA, 60 COMPRIMDIOS)
     Route: 048
     Dates: start: 20230210, end: 20230310

REACTIONS (4)
  - Cardiotoxicity [Recovering/Resolving]
  - Hyperkalaemia [Recovering/Resolving]
  - Acute kidney injury [Recovering/Resolving]
  - Metabolic acidosis [Recovering/Resolving]

NARRATIVE: CASE EVENT DATE: 20230511
